FAERS Safety Report 22736376 (Version 10)
Quarter: 2024Q2

REPORT INFORMATION
  Report Type: Report from Study
  Country: US (occurrence: US)
  Receive Date: 20230721
  Receipt Date: 20240529
  Transmission Date: 20240716
  Serious: Yes (Hospitalization)
  Sender: FDA-Public Use
  Company Number: US-INSMED, INC.-2023-02695-US

PATIENT
  Sex: Male

DRUGS (3)
  1. ARIKAYCE [Suspect]
     Active Substance: AMIKACIN
     Indication: Mycobacterial infection
     Dosage: 590 MILLIGRAM, QD
     Route: 055
     Dates: start: 202306, end: 2023
  2. ARIKAYCE [Suspect]
     Active Substance: AMIKACIN
     Dosage: UNK
     Route: 055
     Dates: start: 2023
  3. ARIKAYCE [Suspect]
     Active Substance: AMIKACIN
     Dosage: 590 MILLIGRAM, QD
     Route: 055
     Dates: start: 2024

REACTIONS (8)
  - Hospitalisation [Unknown]
  - Hospitalisation [Unknown]
  - Malaise [Not Recovered/Not Resolved]
  - Central venous catheterisation [Unknown]
  - Therapy interrupted [Unknown]
  - Wrong technique in product usage process [Unknown]
  - Intentional dose omission [Unknown]
  - Drug dose omission by device [Unknown]

NARRATIVE: CASE EVENT DATE: 20240101
